FAERS Safety Report 24213340 (Version 2)
Quarter: 2024Q3

REPORT INFORMATION
  Report Type: Spontaneous
  Country: US (occurrence: US)
  Receive Date: 20240815
  Receipt Date: 20240822
  Transmission Date: 20241016
  Serious: No
  Sender: PFIZER
  Company Number: US-PFIZER INC-PV202400072252

PATIENT

DRUGS (2)
  1. GENOTROPIN [Suspect]
     Active Substance: SOMATROPIN
     Dosage: 2.4MG UNDER THE SKIN 6 DAYS A WEEK,THEN 2.6MG UNDER SKIN 6 DAYS A WEEK,ALTERNATING EVERY OTHER WEEK
     Route: 058
  2. GENOTROPIN [Suspect]
     Active Substance: SOMATROPIN
     Dosage: 2.4MG UNDER THE SKIN 6 DAYS A WEEK,THEN 2.6MG UNDER SKIN 6 DAYS A WEEK,ALTERNATING EVERY OTHER WEEK
     Route: 058

REACTIONS (1)
  - Device leakage [Unknown]
